FAERS Safety Report 4325236-X (Version None)
Quarter: 2004Q1

REPORT INFORMATION
  Report Type: 
  Country: None (occurrence: None)
  Receive Date: 20040324
  Receipt Date: 20040311
  Transmission Date: 20041129
  Serious: Yes (Hospitalization)
  Sender: FDA-Public Use
  Company Number: FR-JNJFOC-20040302705

PATIENT
  Sex: Male

DRUGS (2)
  1. NIZORAL [Suspect]
     Indication: ADVERSE EVENT
     Dosage: 200 MG , IN 1 DAY, ORAL
     Route: 048
     Dates: start: 20040101
  2. UNSPECIFIED ANTIBIOTICS (ANTIBIOTICS) UNKNOWN [Concomitant]

REACTIONS (1)
  - VERTIGO [None]
